FAERS Safety Report 5504122-3 (Version None)
Quarter: 2007Q4

REPORT INFORMATION
  Report Type: 
  Country: None (occurrence: None)
  Receive Date: 20071030
  Receipt Date: 20071017
  Transmission Date: 20080405
  Serious: Yes (Hospitalization)
  Sender: FDA-Public Use
  Company Number: 238968K07USA

PATIENT
  Age: 48 Year
  Sex: Female
  Weight: 68.0396 kg

DRUGS (8)
  1. REBIF [Suspect]
     Indication: MULTIPLE SCLEROSIS
     Dosage: 22 MCG, 3 IN 1 WEEKS, SUBCUTANEOUS, 22 MCG, 3 IN 1 WEEKS, SUBCUTANEOUS, 22 MCG, 3 IN 1 WEEKS, SUBCUT
     Route: 058
     Dates: start: 20060725, end: 20070601
  2. REBIF [Suspect]
     Indication: MULTIPLE SCLEROSIS
     Dosage: 22 MCG, 3 IN 1 WEEKS, SUBCUTANEOUS, 22 MCG, 3 IN 1 WEEKS, SUBCUTANEOUS, 22 MCG, 3 IN 1 WEEKS, SUBCUT
     Route: 058
     Dates: start: 20070701, end: 20070701
  3. REBIF [Suspect]
     Indication: MULTIPLE SCLEROSIS
     Dosage: 22 MCG, 3 IN 1 WEEKS, SUBCUTANEOUS, 22 MCG, 3 IN 1 WEEKS, SUBCUTANEOUS, 22 MCG, 3 IN 1 WEEKS, SUBCUT
     Route: 058
     Dates: start: 20070701
  4. ALLEGRA (FEXOFENADINE HYDROCHLORIDE) [Concomitant]
  5. PREVACID [Concomitant]
  6. MIRALAX [Concomitant]
  7. XANAX [Concomitant]
  8. LORAZEPAM [Concomitant]

REACTIONS (3)
  - INTERVERTEBRAL DISC PROTRUSION [None]
  - MULTIPLE SCLEROSIS [None]
  - NERVE ROOT COMPRESSION [None]
